FAERS Safety Report 9324499 (Version 1)
Quarter: 2013Q2

REPORT INFORMATION
  Report Type: Spontaneous
  Country: GB (occurrence: GB)
  Receive Date: 20130603
  Receipt Date: 20130603
  Transmission Date: 20140414
  Serious: Yes (Hospitalization, Other)
  Sender: FDA-Public Use
  Company Number: GB-TEVA-408784ISR

PATIENT
  Age: 21 Year
  Sex: Male

DRUGS (9)
  1. HALOPERIDOL [Suspect]
     Indication: PRODUCT USED FOR UNKNOWN INDICATION
     Dosage: DOSAGE FORM: UNSPECIFIED, EVERY 8 HOURS
     Route: 048
  2. HALDOL [Suspect]
     Indication: ABNORMAL BEHAVIOUR
     Dosage: ONLY ONE DOSE GIVEN
     Route: 030
     Dates: start: 20130408, end: 20130408
  3. HALDOL [Suspect]
     Indication: ABNORMAL BEHAVIOUR
     Dosage: 25 MILLIGRAM DAILY;
     Route: 030
     Dates: start: 20130331, end: 20130331
  4. HALDOL [Suspect]
     Indication: MENTAL DISORDER
     Dosage: 25 MILLIGRAM DAILY;
     Route: 030
     Dates: start: 20130331, end: 20130331
  5. HALDOL [Suspect]
     Indication: MENTAL DISORDER
     Dosage: 1.7857 MILLIGRAM DAILY; ONLY ONE DOSE GIVEN
     Route: 030
     Dates: start: 20130408, end: 20130408
  6. HALDOL [Suspect]
     Indication: MANIA
     Dosage: 1.7857 MILLIGRAM DAILY; ONLY ONE DOSE GIVEN
     Route: 030
     Dates: start: 20130408, end: 20130408
  7. HALDOL [Suspect]
     Indication: MANIA
     Route: 030
     Dates: start: 20130331, end: 20130331
  8. DEPAKOTE [Suspect]
     Indication: DRUG THERAPY
     Dosage: DOSAGE FORM: TABLETS
     Route: 048
  9. PROCYCLIDINE [Concomitant]
     Dosage: 20 MILLIGRAM DAILY; DOSAGE FORM: UNSPECIFIED, IN  PM (MAXIMUM DOSE 15 MG PER DAY)
     Route: 048

REACTIONS (5)
  - Dystonia [Unknown]
  - Hypertonia [Unknown]
  - Gait disturbance [Unknown]
  - Sedation [Unknown]
  - Coma scale abnormal [Unknown]
